FAERS Safety Report 12537652 (Version 2)
Quarter: 2016Q3

REPORT INFORMATION
  Report Type: Report from Study
  Country: US (occurrence: US)
  Receive Date: 20160707
  Receipt Date: 20160921
  Transmission Date: 20161109
  Serious: Yes (Hospitalization)
  Sender: FDA-Public Use
  Company Number: US-EXELIXIS-CABO-16006601

PATIENT
  Age: 72 Year
  Sex: Male

DRUGS (27)
  1. OMEPRAZOLE. [Concomitant]
     Active Substance: OMEPRAZOLE
  2. MAALOX ANTACID [Concomitant]
     Active Substance: ALUMINUM HYDROXIDE\DIMETHICONE\MAGNESIUM HYDROXIDE
  3. FUROSEMIDE. [Concomitant]
     Active Substance: FUROSEMIDE
  4. CELEXA [Concomitant]
     Active Substance: CITALOPRAM HYDROBROMIDE
  5. CARVEDIOL [Concomitant]
     Active Substance: CARVEDILOL
  6. LORAZEPAM. [Concomitant]
     Active Substance: LORAZEPAM
  7. LEVEMIR [Concomitant]
     Active Substance: INSULIN DETEMIR
  8. FAMOTIDINE. [Concomitant]
     Active Substance: FAMOTIDINE
  9. SPIRONOLACTONE. [Concomitant]
     Active Substance: SPIRONOLACTONE
  10. NYSTATIN. [Concomitant]
     Active Substance: NYSTATIN
  11. KENALOG [Concomitant]
     Active Substance: TRIAMCINOLONE ACETONIDE
  12. LIDOCAINE. [Concomitant]
     Active Substance: LIDOCAINE
  13. PROCHLORPERAZINE. [Concomitant]
     Active Substance: PROCHLORPERAZINE
  14. LOSARTAN. [Concomitant]
     Active Substance: LOSARTAN
  15. KLOR-CON [Concomitant]
     Active Substance: POTASSIUM CHLORIDE
  16. LIPITOR [Concomitant]
     Active Substance: ATORVASTATIN CALCIUM
  17. CABOMETYX [Suspect]
     Active Substance: CABOZANTINIB S-MALATE
     Indication: RENAL CANCER
     Dosage: 60 MG, QD
     Route: 048
     Dates: start: 20160520, end: 201606
  18. BENADRYL [Concomitant]
     Active Substance: DIPHENHYDRAMINE HYDROCHLORIDE
  19. PERCOCET [Concomitant]
     Active Substance: ACETAMINOPHEN\OXYCODONE HYDROCHLORIDE
  20. INVOKANA [Concomitant]
     Active Substance: CANAGLIFLOZIN
  21. CABOMETYX [Suspect]
     Active Substance: CABOZANTINIB S-MALATE
     Dosage: 40 MG, QD
     Route: 048
     Dates: start: 201607
  22. TRIAMCINOLONE [Concomitant]
     Active Substance: TRIAMCINOLONE
  23. PENTOXIFYLLINE. [Concomitant]
     Active Substance: PENTOXIFYLLINE
  24. MIRALAX [Concomitant]
     Active Substance: POLYETHYLENE GLYCOL 3350
  25. ASPIRIN. [Concomitant]
     Active Substance: ASPIRIN
  26. ACYCLOVIR. [Concomitant]
     Active Substance: ACYCLOVIR
  27. AMOXICILLIN. [Concomitant]
     Active Substance: AMOXICILLIN

REACTIONS (7)
  - Stomatitis [Not Recovered/Not Resolved]
  - Abdominal discomfort [Unknown]
  - Diarrhoea [Not Recovered/Not Resolved]
  - Constipation [Unknown]
  - Dehydration [Unknown]
  - Decreased appetite [Unknown]
  - Oral pain [Not Recovered/Not Resolved]

NARRATIVE: CASE EVENT DATE: 20160619
